FAERS Safety Report 5284612-1 (Version None)
Quarter: 2007Q2

REPORT INFORMATION
  Report Type: 
  Country: None (occurrence: None)
  Receive Date: 20070403
  Receipt Date: 20070322
  Transmission Date: 20071010
  Serious: Yes (Other)
  Sender: FDA-Public Use
  Company Number: JP-ROCHE-471867

PATIENT
  Age: 38 Year
  Sex: Male

DRUGS (10)
  1. CELLCEPT [Suspect]
     Indication: PROPHYLAXIS AGAINST GRAFT VERSUS HOST DISEASE
     Route: 048
     Dates: start: 20020615
  2. CLARITHROMYCIN [Suspect]
     Indication: INFECTION PROPHYLAXIS
     Route: 048
     Dates: start: 20020615
  3. PREDONINE [Concomitant]
     Route: 048
     Dates: start: 20020615
  4. ISCOTIN [Concomitant]
     Route: 048
     Dates: start: 20020615
  5. BAKTAR [Concomitant]
     Route: 048
     Dates: start: 20020615
  6. BESTATIN [Concomitant]
     Route: 048
     Dates: start: 20020615, end: 20030615
  7. MUCOSOLVAN [Concomitant]
     Route: 048
     Dates: start: 20020615
  8. ALFACALCIDOL [Concomitant]
     Route: 048
     Dates: start: 20020615
  9. CODEINE PHOSPHATE [Concomitant]
     Route: 048
     Dates: start: 20020615
  10. LENDORMIN [Concomitant]
     Route: 048
     Dates: start: 20040615

REACTIONS (1)
  - LEUKOENCEPHALOPATHY [None]
